FAERS Safety Report 23944558 (Version 1)
Quarter: 2024Q2

REPORT INFORMATION
  Report Type: Spontaneous
  Country: FR (occurrence: FR)
  Receive Date: 20240606
  Receipt Date: 20240606
  Transmission Date: 20240716
  Serious: Yes (Life-Threatening)
  Sender: FDA-Public Use
  Company Number: FR-AFSSAPS-PB2024000242

PATIENT
  Age: 52 Year
  Sex: Female
  Weight: 106 kg

DRUGS (2)
  1. ODOMZO [Suspect]
     Active Substance: SONIDEGIB
     Indication: Basal cell naevus syndrome
     Dosage: 200 MILLIGRAM, QOD
     Route: 048
     Dates: start: 20240130, end: 20240202
  2. ODOMZO [Suspect]
     Active Substance: SONIDEGIB
     Dosage: 200 MILLIGRAM, DAILY
     Route: 048
     Dates: start: 20230620, end: 20240129

REACTIONS (1)
  - Cardiac failure acute [Recovered/Resolved with Sequelae]

NARRATIVE: CASE EVENT DATE: 20231231
